FAERS Safety Report 10966803 (Version 3)
Quarter: 2015Q2

REPORT INFORMATION
  Report Type: Spontaneous
  Country: US (occurrence: US)
  Receive Date: 20150330
  Receipt Date: 20150413
  Transmission Date: 20150821
  Serious: Yes (Death, Hospitalization)
  Sender: FDA-Public Use
  Company Number: US-ACTELION-A-NJ2015-115331

PATIENT
  Age: 46 Year
  Sex: Female

DRUGS (15)
  1. FOLIC ACID. [Concomitant]
     Active Substance: FOLIC ACID
  2. NIFEDIPINE. [Concomitant]
     Active Substance: NIFEDIPINE
  3. PROGRAF [Concomitant]
     Active Substance: TACROLIMUS\TACROLIMUS ANHYDROUS
  4. AZATHIOPRINE. [Concomitant]
     Active Substance: AZATHIOPRINE
  5. VELETRI [Suspect]
     Active Substance: EPOPROSTENOL
     Indication: PULMONARY HYPERTENSION
     Route: 042
  6. ADCIRCA [Concomitant]
     Active Substance: TADALAFIL
  7. HYDROXYCHLOROQUINE [Concomitant]
     Active Substance: HYDROXYCHLOROQUINE
  8. DIOVAN [Concomitant]
     Active Substance: VALSARTAN
  9. FOSINOPRIL [Concomitant]
     Active Substance: FOSINOPRIL
  10. FUROSEMIDE. [Concomitant]
     Active Substance: FUROSEMIDE
  11. VENTAVIS [Suspect]
     Active Substance: ILOPROST
     Dosage: UNK
     Route: 055
     Dates: start: 20101026
  12. OPSUMIT [Suspect]
     Active Substance: MACITENTAN
     Indication: PULMONARY HYPERTENSION
     Route: 048
  13. VENTAVIS [Suspect]
     Active Substance: ILOPROST
     Indication: PULMONARY HYPERTENSION
     Dosage: UNK
     Route: 055
     Dates: start: 20150322, end: 20150401
  14. LANTUS [Concomitant]
     Active Substance: INSULIN GLARGINE
  15. GLIMEPIRIDE. [Concomitant]
     Active Substance: GLIMEPIRIDE

REACTIONS (8)
  - Septic shock [Fatal]
  - Infection [Unknown]
  - Hysterectomy [Unknown]
  - Staphylococcus test positive [Fatal]
  - Sepsis [Fatal]
  - Abdominal wound dehiscence [Unknown]
  - Abdominal pain [Unknown]
  - Uterine fibrosis [Unknown]

NARRATIVE: CASE EVENT DATE: 20150226
